FAERS Safety Report 7410067-4 (Version None)
Quarter: 2011Q2

REPORT INFORMATION
  Report Type: 
  Country: None (occurrence: None)
  Receive Date: 20110412
  Receipt Date: 20110330
  Transmission Date: 20111010
  Serious: Yes (Hospitalization, Other)
  Sender: FDA-Public Use
  Company Number: US-ELI_LILLY_AND_COMPANY-US201102006863

PATIENT
  Sex: Female
  Weight: 74.4 kg

DRUGS (22)
  1. CALCIUM WITH VITAMIN D [Concomitant]
  2. FORTEO [Suspect]
     Dosage: 20 UG, DAILY (1/D)
     Dates: end: 20101124
  3. METOPROLOL TARTRATE [Concomitant]
  4. ROPINIROLE [Concomitant]
  5. MULTI-VITAMIN [Concomitant]
  6. FORTEO [Suspect]
     Dosage: 20 UG, DAILY (1/D)
     Dates: start: 20101127, end: 20110203
  7. OMEPRAZOLE [Concomitant]
  8. TRAMADOL HCL [Concomitant]
  9. NITROSTAT [Concomitant]
  10. SIMVASTATIN [Concomitant]
  11. ADVAIR DISKUS 100/50 [Concomitant]
  12. EFFIENT [Concomitant]
  13. VITAMIN D [Concomitant]
  14. FORTEO [Suspect]
     Indication: OSTEOPOROSIS
     Dosage: 20 UG, DAILY (1/D)
     Dates: start: 20100701
  15. COUMADIN [Concomitant]
  16. METHOTREXATE [Concomitant]
  17. LEVOTHYROXINE SODIUM [Concomitant]
  18. PEPCID COMPLETE [Concomitant]
  19. MAGNESIUM [Concomitant]
  20. ASPIRIN [Concomitant]
  21. VENTOLIN HFA [Concomitant]
  22. PREDNISONE [Concomitant]

REACTIONS (15)
  - PAIN [None]
  - NAUSEA [None]
  - FATIGUE [None]
  - SUBARACHNOID HAEMORRHAGE [None]
  - DECREASED APPETITE [None]
  - FEELING ABNORMAL [None]
  - FALL [None]
  - HYPOACUSIS [None]
  - BALANCE DISORDER [None]
  - HEAD INJURY [None]
  - HEADACHE [None]
  - ASTHENIA [None]
  - GAIT DISTURBANCE [None]
  - GENERAL PHYSICAL HEALTH DETERIORATION [None]
  - DRUG DOSE OMISSION [None]
